FAERS Safety Report 23714382 (Version 1)
Quarter: 2024Q2

REPORT INFORMATION
  Report Type: Spontaneous
  Country: US (occurrence: US)
  Receive Date: 20240406
  Receipt Date: 20240406
  Transmission Date: 20240716
  Serious: Yes (Hospitalization, Other)
  Sender: FDA-Public Use
  Company Number: US-CBL-002533

PATIENT
  Sex: Male

DRUGS (2)
  1. MYCOPHENOLATE MOFETIL [Suspect]
     Active Substance: MYCOPHENOLATE MOFETIL
     Indication: Prophylaxis against transplant rejection
     Route: 065
  2. TACROLIMUS [Suspect]
     Active Substance: TACROLIMUS
     Indication: Prophylaxis against transplant rejection
     Route: 065

REACTIONS (6)
  - Blood loss anaemia [Recovered/Resolved]
  - Sepsis [Unknown]
  - Diverticulitis [Unknown]
  - Diffuse large B-cell lymphoma [Unknown]
  - Shock haemorrhagic [Unknown]
  - Upper gastrointestinal haemorrhage [Unknown]
